FAERS Safety Report 6805095-3 (Version None)
Quarter: 2010Q2

REPORT INFORMATION
  Report Type: 
  Country: None (occurrence: None)
  Receive Date: 20100628
  Receipt Date: 20070820
  Transmission Date: 20101027
  Serious: No
  Sender: FDA-Public Use
  Company Number: US-PFIZER INC-2007070161

PATIENT
  Age: 65 Year
  Sex: Male
  Weight: 77.11 kg

DRUGS (6)
  1. XALATAN [Suspect]
     Indication: INTRAOCULAR PRESSURE INCREASED
     Dates: start: 20070401
  2. CELEXA [Concomitant]
  3. IMIPRAMINE [Concomitant]
  4. LISINOPRIL [Concomitant]
  5. VYTORIN [Concomitant]
  6. NEURONTIN [Concomitant]

REACTIONS (4)
  - ABNORMAL DREAMS [None]
  - ALCOHOL INTOLERANCE [None]
  - FEELING ABNORMAL [None]
  - INSOMNIA [None]
